FAERS Safety Report 7922704-6 (Version None)
Quarter: 2011Q4

REPORT INFORMATION
  Report Type: 
  Country: None (occurrence: None)
  Receive Date: 20111117
  Receipt Date: 20110608
  Transmission Date: 20120403
  Serious: No
  Sender: FDA-Public Use
  Company Number: US-ALLERGAN-1107786US

PATIENT
  Age: 53 Year
  Sex: Male

DRUGS (3)
  1. ALPHAGAN [Suspect]
     Indication: INTRAOCULAR PRESSURE TEST
     Dosage: UNK
     Dates: start: 20110520
  2. COMBIGAN [Suspect]
     Indication: INTRAOCULAR PRESSURE INCREASED
     Dosage: 1 GTT, SINGLE
     Route: 047
     Dates: start: 20110512
  3. OTC EYE DROP [Concomitant]
     Indication: EYE IRRIGATION
     Dosage: UNK
     Route: 047

REACTIONS (5)
  - EYE IRRITATION [None]
  - LACRIMATION INCREASED [None]
  - EYE PAIN [None]
  - ABNORMAL SENSATION IN EYE [None]
  - VISION BLURRED [None]
